FAERS Safety Report 17779591 (Version 1)
Quarter: 2020Q2

REPORT INFORMATION
  Report Type: Spontaneous
  Country: NO (occurrence: NO)
  Receive Date: 20200513
  Receipt Date: 20200513
  Transmission Date: 20200714
  Serious: Yes (Disabling, Other)
  Sender: FDA-Public Use
  Company Number: NO-PFIZER INC-2020191413

PATIENT
  Age: 41 Year
  Sex: Female
  Weight: 80 kg

DRUGS (2)
  1. METHOTREXATE SODIUM. [Suspect]
     Active Substance: METHOTREXATE SODIUM
     Indication: ARTHRITIS
     Dosage: DAILY, TAKEN EVERY DAY EXCEPT FOR ONE
     Dates: start: 2010, end: 2011
  2. METHOTREXATE SODIUM. [Suspect]
     Active Substance: METHOTREXATE SODIUM
     Indication: PSORIASIS

REACTIONS (12)
  - General physical health deterioration [Recovered/Resolved with Sequelae]
  - Fatigue [Unknown]
  - Cognitive disorder [Recovered/Resolved with Sequelae]
  - Memory impairment [Unknown]
  - Aphasia [Unknown]
  - Inappropriate schedule of product administration [Unknown]
  - Palpitations [Recovered/Resolved with Sequelae]
  - Dizziness [Recovered/Resolved with Sequelae]
  - Diarrhoea [Recovered/Resolved with Sequelae]
  - Somnolence [Unknown]
  - Dyspnoea [Recovered/Resolved with Sequelae]
  - Tremor [Unknown]
